FAERS Safety Report 10039628 (Version 1)
Quarter: 2014Q1

REPORT INFORMATION
  Report Type: Spontaneous
  Country: CA (occurrence: CA)
  Receive Date: 20140326
  Receipt Date: 20140326
  Transmission Date: 20141002
  Serious: Yes (Other)
  Sender: FDA-Public Use
  Company Number: CA-BAXTER-2014BAX015029

PATIENT
  Age: 81 Year
  Sex: Female

DRUGS (2)
  1. SUPRANE (DESFLURANE) [Suspect]
     Indication: ANAESTHESIA
     Route: 055
  2. ATENOLOL [Concomitant]
     Indication: HYPERTENSION
     Route: 065

REACTIONS (1)
  - Hepatotoxicity [Recovered/Resolved]
